FAERS Safety Report 22335605 (Version 1)
Quarter: 2023Q2

REPORT INFORMATION
  Report Type: Spontaneous
  Country: US (occurrence: US)
  Receive Date: 20230518
  Receipt Date: 20230518
  Transmission Date: 20230721
  Serious: No
  Sender: FDA-Public Use
  Company Number: US-BRISTOL-MYERS SQUIBB COMPANY-2023-069879

PATIENT
  Age: 67 Year
  Sex: Female
  Weight: 68.8 kg

DRUGS (1)
  1. ABECMA [Suspect]
     Active Substance: IDECABTAGENE VICLEUCEL
     Indication: Plasma cell myeloma
     Dosage: 460 ? 106 CAR-POSITIVE T CELLS IN 115.17ML
     Dates: start: 20230404, end: 20230404

REACTIONS (1)
  - Toxicity to various agents [Unknown]
